FAERS Safety Report 8436226 (Version 4)
Quarter: 2012Q4

REPORT INFORMATION
  Report Type: 
  Country: AT (occurrence: AT)
  Receive Date: 20120301
  Receipt Date: 20121029
  Transmission Date: 20130627
  Serious: Yes (Death, Hospitalization)
  Sender: FDA-Public Use
  Company Number: AT-CELGENEUS-009-50794-12022806

PATIENT
  Age: 81 Year
  Sex: Male
  Weight: 68 kg

DRUGS (3)
  1. VIDAZA [Suspect]
     Indication: RAEB
     Dosage: 130 Milligram
     Route: 058
     Dates: start: 20111117, end: 20120113
  2. VIDAZA [Suspect]
     Dosage: 130 Milligram
     Route: 058
  3. GRANISETRON [Concomitant]
     Indication: ANTIEMETIC SUPPORTIVE CARE
     Dosage: 2 Milligram
     Route: 065

REACTIONS (5)
  - Necrotising colitis [Fatal]
  - Colitis ischaemic [Fatal]
  - Large intestine perforation [Fatal]
  - Sepsis [Fatal]
  - Renal failure [Fatal]
